FAERS Safety Report 7351557-2 (Version None)
Quarter: 2011Q1

REPORT INFORMATION
  Report Type: 
  Country: None (occurrence: None)
  Receive Date: 20110314
  Receipt Date: 20110228
  Transmission Date: 20110831
  Serious: Yes (Other)
  Sender: FDA-Public Use
  Company Number: US-AMGEN-USASP2011011464

PATIENT
  Age: 2 Year
  Sex: Male

DRUGS (2)
  1. IRON [Concomitant]
     Route: 042
  2. PROCRIT [Suspect]
     Indication: NORMOCHROMIC NORMOCYTIC ANAEMIA
     Dosage: UNK

REACTIONS (4)
  - THERAPEUTIC RESPONSE DECREASED [None]
  - BLOOD TEST ABNORMAL [None]
  - MARROW HYPERPLASIA [None]
  - RENAL FAILURE [None]
